FAERS Safety Report 16338316 (Version 2)
Quarter: 2019Q2

REPORT INFORMATION
  Report Type: Report from Study
  Country: US (occurrence: US)
  Receive Date: 20190521
  Receipt Date: 20190524
  Transmission Date: 20190711
  Serious: Yes (Hospitalization)
  Sender: FDA-Public Use
  Company Number: US-CELGENEUS-USA-20190505145

PATIENT
  Age: 68 Year
  Sex: Female
  Weight: 82.9 kg

DRUGS (3)
  1. ABRAXANE [Suspect]
     Active Substance: PACLITAXEL
     Indication: CHOLANGIOCARCINOMA
     Dosage: 392 MILLIGRAM
     Route: 041
     Dates: start: 20190429, end: 20190506
  2. CISPLATIN. [Suspect]
     Active Substance: CISPLATIN
     Indication: CHOLANGIOCARCINOMA
     Dosage: 98 MILLIGRAM
     Route: 065
     Dates: start: 20190429, end: 20190506
  3. GEMCITABINE [Suspect]
     Active Substance: GEMCITABINE\GEMCITABINE HYDROCHLORIDE
     Indication: CHOLANGIOCARCINOMA
     Dosage: 3200 MILLIGRAM
     Route: 065
     Dates: start: 20190429, end: 20190506

REACTIONS (2)
  - Portal vein thrombosis [Not Recovered/Not Resolved]
  - Biliary tract infection [Recovering/Resolving]

NARRATIVE: CASE EVENT DATE: 20190510
